FAERS Safety Report 5663804-3 (Version None)
Quarter: 2008Q1

REPORT INFORMATION
  Report Type: 
  Country: None (occurrence: None)
  Receive Date: 20080310
  Receipt Date: 20080228
  Transmission Date: 20080703
  Serious: Yes (Other)
  Sender: FDA-Public Use
  Company Number: 2008005357

PATIENT
  Age: 2 Year
  Sex: Male
  Weight: 13 kg

DRUGS (2)
  1. COOL CITRUS LISTERINE MOUTHWASH (MENTHOL, METHYL SALICYLATE, EUCALYPTO [Suspect]
     Indication: ACCIDENTAL EXPOSURE
     Dosage: ORAL
     Route: 048
     Dates: start: 20080227, end: 20080227
  2. DIPYRONE INJ [Suspect]
     Indication: PYREXIA
     Dosage: ORAL
     Route: 048
     Dates: start: 20080228, end: 20080228

REACTIONS (4)
  - ACCIDENTAL EXPOSURE [None]
  - CONVULSION [None]
  - PYREXIA [None]
  - STOMATITIS [None]
